FAERS Safety Report 7876280-7 (Version None)
Quarter: 2011Q4

REPORT INFORMATION
  Report Type: 
  Country: None (occurrence: None)
  Receive Date: 20111031
  Receipt Date: 20111024
  Transmission Date: 20120403
  Serious: Yes (Hospitalization)
  Sender: FDA-Public Use
  Company Number: FR-MERCK-1110FRA00127

PATIENT
  Age: 60 Year
  Sex: Male

DRUGS (2)
  1. VYTORIN [Suspect]
     Route: 048
  2. FLUINDIONE [Concomitant]
     Route: 065

REACTIONS (1)
  - RENAL TUBULAR DISORDER [None]
